FAERS Safety Report 15208114 (Version 1)
Quarter: 2018Q3

REPORT INFORMATION
  Report Type: Spontaneous
  Country: GB (occurrence: GB)
  Receive Date: 20180727
  Receipt Date: 20180727
  Transmission Date: 20181010
  Serious: Yes (Other)
  Sender: FDA-Public Use
  Company Number: GB-TEVA-2018-GB-931186

PATIENT
  Age: 18 Year
  Sex: Male
  Weight: 56.24 kg

DRUGS (3)
  1. PREDNISOLONE. [Suspect]
     Active Substance: PREDNISOLONE
     Indication: CROHN^S DISEASE
     Route: 048
  2. ANALGESIC [Concomitant]
     Active Substance: UNSPECIFIED INGREDIENT
     Dosage: VERY OCCASIONAL OVER THE COUNTER PAIN KILLERS
  3. PREDNISOLONE. [Suspect]
     Active Substance: PREDNISOLONE
     Route: 048
     Dates: start: 20180510

REACTIONS (4)
  - Tremor [Unknown]
  - Agitation [Unknown]
  - Emotional distress [Unknown]
  - Psychotic disorder [Not Recovered/Not Resolved]

NARRATIVE: CASE EVENT DATE: 20180622
